FAERS Safety Report 4317985-4 (Version None)
Quarter: 2004Q1

REPORT INFORMATION
  Report Type: 
  Country: None (occurrence: None)
  Receive Date: 20040316
  Receipt Date: 20020607
  Transmission Date: 20041129
  Serious: Yes (Hospitalization)
  Sender: FDA-Public Use
  Company Number: PHHO2002NZ04463

PATIENT
  Age: 58 Year
  Sex: Female
  Weight: 102 kg

DRUGS (3)
  1. TAMOXIFEN CITRATE [Suspect]
     Indication: BREAST CANCER
     Route: 048
     Dates: start: 19981210, end: 20020330
  2. ELMIRON [Concomitant]
  3. THYROXINE [Concomitant]

REACTIONS (7)
  - BLADDER PAIN [None]
  - BREAST CELLULITIS [None]
  - CELLULITIS [None]
  - HYPERTONIC BLADDER [None]
  - INCONTINENCE [None]
  - NOCTURIA [None]
  - POLLAKIURIA [None]
